FAERS Safety Report 7077841-8 (Version None)
Quarter: 2010Q4

REPORT INFORMATION
  Report Type: 
  Country: None (occurrence: None)
  Receive Date: 20101101
  Receipt Date: 20101025
  Transmission Date: 20110411
  Serious: Yes (Hospitalization)
  Sender: FDA-Public Use
  Company Number: PHHO2010DE16174

PATIENT
  Sex: Female

DRUGS (3)
  1. CERTICAN [Suspect]
     Indication: RENAL TRANSPLANT
     Dosage: 3 MG, BID
     Route: 048
  2. MYCOPHENOLATE MOFETIL [Suspect]
     Indication: RENAL TRANSPLANT
     Dosage: 360 MG, TID
     Route: 048
     Dates: end: 20101025
  3. VALCYTE [Suspect]
     Indication: CYTOMEGALOVIRUS INFECTION
     Dosage: 450 MG / DAY
     Dates: start: 20100802

REACTIONS (2)
  - DIARRHOEA [None]
  - PANCYTOPENIA [None]
